APPROVED DRUG PRODUCT: PRESAMINE
Active Ingredient: IMIPRAMINE HYDROCHLORIDE
Strength: 25MG
Dosage Form/Route: TABLET;ORAL
Application: N011836 | Product #003
Applicant: SANOFI AVENTIS US LLC
Approved: Approved Prior to Jan 1, 1982 | RLD: No | RS: No | Type: DISCN